FAERS Safety Report 23265909 (Version 2)
Quarter: 2024Q1

REPORT INFORMATION
  Report Type: Report from Study
  Country: US (occurrence: US)
  Receive Date: 20231206
  Receipt Date: 20240229
  Transmission Date: 20240410
  Serious: Yes (Disabling)
  Sender: FDA-Public Use
  Company Number: US-ABBVIE-5520668

PATIENT
  Sex: Male

DRUGS (1)
  1. SKYRIZI [Suspect]
     Active Substance: RISANKIZUMAB-RZAA
     Indication: Psoriasis
     Route: 058

REACTIONS (9)
  - Disability [Unknown]
  - Mental disorder [Recovering/Resolving]
  - Fear [Unknown]
  - Pain [Not Recovered/Not Resolved]
  - Psoriasis [Not Recovered/Not Resolved]
  - Lumbar spinal stenosis [Unknown]
  - Acne [Not Recovered/Not Resolved]
  - Musculoskeletal discomfort [Unknown]
  - Accident [Unknown]

NARRATIVE: CASE EVENT DATE: 20110101
